FAERS Safety Report 5123539-2 (Version None)
Quarter: 2006Q3

REPORT INFORMATION
  Report Type: 
  Country: None (occurrence: None)
  Receive Date: 20060801
  Receipt Date: 20060328
  Transmission Date: 20061208
  Serious: Yes (Hospitalization)
  Sender: FDA-Public Use
  Company Number: 2006043651

PATIENT

DRUGS (1)
  1. CAMPTOSAR [Suspect]
     Indication: ILL-DEFINED DISORDER

REACTIONS (1)
  - DIARRHOEA [None]
